FAERS Safety Report 4678651-9 (Version None)
Quarter: 2005Q2

REPORT INFORMATION
  Report Type: 
  Country: None (occurrence: None)
  Receive Date: 20050527
  Receipt Date: 20050504
  Transmission Date: 20051028
  Serious: Yes (Hospitalization)
  Sender: FDA-Public Use
  Company Number: 2005076997

PATIENT
  Age: 47 Year
  Sex: Female

DRUGS (4)
  1. CELECOXIB (CELECOXIB) [Suspect]
     Indication: ARTHRALGIA
  2. TACROLIMUS (TACROLIMUS) [Concomitant]
  3. MYCOPHENOLATE MOFETIL (MYCOPHENOLATE MOFETIL) [Concomitant]
  4. PREDNISONE (PREDNISONE) [Concomitant]

REACTIONS (2)
  - KIDNEY TRANSPLANT REJECTION [None]
  - NEPHROPATHY TOXIC [None]
